FAERS Safety Report 16070736 (Version 1)
Quarter: 2019Q1

REPORT INFORMATION
  Report Type: Spontaneous
  Country: US (occurrence: US)
  Receive Date: 20190212
  Receipt Date: 20190212
  Transmission Date: 20190418
  Serious: No
  Sender: FDA-Public Use
  Company Number: None

PATIENT
  Age: 37 Year
  Sex: Female

DRUGS (1)
  1. REBIF [Suspect]
     Active Substance: INTERFERON BETA-1A
     Dosage: ?          OTHER
     Route: 058
     Dates: start: 201101

REACTIONS (3)
  - Injection site bruising [None]
  - Product complaint [None]
  - Injection site pain [None]

NARRATIVE: CASE EVENT DATE: 20190212
